FAERS Safety Report 5178920-2 (Version None)
Quarter: 2006Q4

REPORT INFORMATION
  Report Type: 
  Country: None (occurrence: None)
  Receive Date: 20061213
  Receipt Date: 20061213
  Transmission Date: 20070319
  Serious: Yes (Life-Threatening, Hospitalization)
  Sender: FDA-Public Use
  Company Number: None

PATIENT
  Sex: Female
  Weight: 58.514 kg

DRUGS (1)
  1. HUMIRA [Suspect]
     Indication: RHEUMATOID ARTHRITIS
     Dosage: 40 MG  EVERY OTHER WEEK SQ
     Route: 058
     Dates: start: 20050501, end: 20061210

REACTIONS (5)
  - BACTERIA SPUTUM IDENTIFIED [None]
  - PLEURAL EFFUSION [None]
  - PNEUMONIA [None]
  - PYOTHORAX [None]
  - STAPHYLOCOCCAL INFECTION [None]
